FAERS Safety Report 6124714-0 (Version None)
Quarter: 2009Q1

REPORT INFORMATION
  Report Type: 
  Country: None (occurrence: None)
  Receive Date: 20090319
  Receipt Date: 20090310
  Transmission Date: 20090719
  Serious: Yes (Other)
  Sender: FDA-Public Use
  Company Number: PHHY2009BR09236

PATIENT
  Age: 69 Year
  Sex: Female

DRUGS (3)
  1. DIOVAN AMLO FIX [Suspect]
     Dosage: 160 MG VALSARTAN/5 MG AMLODIPINE
     Dates: start: 20081201
  2. PANTOZOL [Concomitant]
     Dosage: UNK
  3. NIMODIPINE [Concomitant]
     Indication: LABYRINTHITIS
     Dosage: UNK

REACTIONS (3)
  - OEDEMA PERIPHERAL [None]
  - SKIN ULCER [None]
  - WOUND SECRETION [None]
